FAERS Safety Report 6299392-0 (Version None)
Quarter: 2009Q3

REPORT INFORMATION
  Report Type: 
  Country: None (occurrence: None)
  Receive Date: 20090806
  Receipt Date: 20090730
  Transmission Date: 20100115
  Serious: No
  Sender: FDA-Public Use
  Company Number: US-B.I. PHARMACEUTICALS,INC./RIDGEFIELD-2009-BP-09041BP

PATIENT
  Age: 73 Year
  Sex: Female

DRUGS (3)
  1. AGGRENOX [Suspect]
     Indication: TRANSIENT ISCHAEMIC ATTACK
     Route: 048
     Dates: start: 20090201, end: 20090201
  2. BLOOD PRESSURE  MEDICATION [Concomitant]
     Indication: BLOOD PRESSURE INCREASED
  3. ANXIETY MEDICATION [Concomitant]
     Indication: ANXIETY

REACTIONS (5)
  - FATIGUE [None]
  - HEADACHE [None]
  - HYPERVENTILATION [None]
  - NAUSEA [None]
  - VISION BLURRED [None]
